FAERS Safety Report 4884398-6 (Version None)
Quarter: 2006Q1

REPORT INFORMATION
  Report Type: 
  Country: None (occurrence: None)
  Receive Date: 20060117
  Receipt Date: 20060117
  Transmission Date: 20060701
  Serious: Yes (Death)
  Sender: FDA-Public Use
  Company Number: None

PATIENT
  Sex: Male
  Weight: 101.6 kg

DRUGS (1)
  1. GEMCITIBINE [Suspect]
     Dosage: SEE IMAGE
     Route: 042
     Dates: start: 20051222, end: 20051229

REACTIONS (1)
  - DEATH [None]
